FAERS Safety Report 5024509-5 (Version None)
Quarter: 2006Q2

REPORT INFORMATION
  Report Type: 
  Country: None (occurrence: None)
  Receive Date: 20060613
  Receipt Date: 20060602
  Transmission Date: 20061013
  Serious: Yes (Other)
  Sender: FDA-Public Use
  Company Number: US-JNJFOC-20060601863

PATIENT
  Age: 61 Year
  Sex: Female

DRUGS (1)
  1. TOPAMAX [Suspect]
     Indication: DRUG USE FOR UNKNOWN INDICATION

REACTIONS (4)
  - COORDINATION ABNORMAL [None]
  - FEELING ABNORMAL [None]
  - HEAT STROKE [None]
  - LOSS OF CONSCIOUSNESS [None]
